FAERS Safety Report 10784774 (Version 1)
Quarter: 2015Q1

REPORT INFORMATION
  Report Type: Spontaneous
  Country: US (occurrence: US)
  Receive Date: 20150211
  Receipt Date: 20150211
  Transmission Date: 20150721
  Serious: No
  Sender: FDA-Public Use
  Company Number: US-GLAXOSMITHKLINE-A1084716A

PATIENT

DRUGS (8)
  1. VALIUM [Concomitant]
     Active Substance: DIAZEPAM
  2. EFFEXOR [Concomitant]
     Active Substance: VENLAFAXINE HYDROCHLORIDE
  3. RESTORIL [Concomitant]
     Active Substance: TEMAZEPAM
  4. MOBIC [Concomitant]
     Active Substance: MELOXICAM
  5. ATIVAN [Concomitant]
     Active Substance: LORAZEPAM
  6. LAMICTAL [Suspect]
     Active Substance: LAMOTRIGINE
     Indication: POST-TRAUMATIC STRESS DISORDER
     Route: 048
     Dates: start: 2012
  7. MORPHINE [Concomitant]
     Active Substance: MORPHINE
  8. SYNTHROID [Concomitant]
     Active Substance: LEVOTHYROXINE SODIUM

REACTIONS (1)
  - Gingival recession [Not Recovered/Not Resolved]
